FAERS Safety Report 20907559 (Version 1)
Quarter: 2022Q2

REPORT INFORMATION
  Report Type: Spontaneous
  Country: US (occurrence: US)
  Receive Date: 20220602
  Receipt Date: 20220602
  Transmission Date: 20220720
  Serious: No
  Sender: FDA-Public Use
  Company Number: US-BRISTOL-MYERS SQUIBB COMPANY-2022-050423

PATIENT
  Age: 94 Year
  Sex: Female
  Weight: 59.4 kg

DRUGS (1)
  1. POMALYST [Suspect]
     Active Substance: POMALIDOMIDE
     Indication: Plasma cell myeloma
     Dosage: FREQ-3 WEEKS,1 WEEK OFF
     Route: 048
     Dates: start: 20210501

REACTIONS (1)
  - Fatigue [Unknown]
